FAERS Safety Report 9017267 (Version 1)
Quarter: 2013Q1

REPORT INFORMATION
  Report Type: Spontaneous
  Country: US (occurrence: US)
  Receive Date: 20130117
  Receipt Date: 20130117
  Transmission Date: 20140127
  Serious: Yes (Other)
  Sender: FDA-Public Use
  Company Number: US-BAYER-2013-005617

PATIENT
  Age: 24 Year
  Sex: Female

DRUGS (1)
  1. MIRENA [Suspect]
     Dosage: 20 MCG/24HR, CONT
     Route: 015
     Dates: start: 201209

REACTIONS (6)
  - Vaginal haemorrhage [None]
  - Premenstrual syndrome [None]
  - Irritability [None]
  - Breast pain [None]
  - Feeling abnormal [None]
  - Vaginal discharge [None]
